FAERS Safety Report 21545071 (Version 2)
Quarter: 2022Q4

REPORT INFORMATION
  Report Type: Spontaneous
  Country: JP (occurrence: JP)
  Receive Date: 20221103
  Receipt Date: 20221202
  Transmission Date: 20230113
  Serious: Yes (Life-Threatening, Other)
  Sender: FDA-Public Use
  Company Number: JP-Teva Takeda Yakuhin-2022-JP-003931J

PATIENT
  Age: 65 Year
  Sex: Male

DRUGS (1)
  1. PREDNISOLONE [Suspect]
     Active Substance: PREDNISOLONE
     Indication: Immunoglobulin G4 related disease
     Route: 048
     Dates: start: 2017, end: 20221123

REACTIONS (15)
  - Hepatic function abnormal [Unknown]
  - Renal disorder [Unknown]
  - Pancreatic disorder [Unknown]
  - Hyposomnia [Unknown]
  - Weight decreased [Unknown]
  - Drug eruption [Unknown]
  - Diabetes mellitus [Recovering/Resolving]
  - Blood glucose increased [Recovering/Resolving]
  - Glycosylated haemoglobin increased [Recovering/Resolving]
  - Foot fracture [Unknown]
  - Visual field defect [Unknown]
  - Grip strength decreased [Unknown]
  - Visual impairment [Unknown]
  - Chest discomfort [Unknown]
  - Palpitations [Unknown]

NARRATIVE: CASE EVENT DATE: 20190101
